FAERS Safety Report 8196760-7 (Version None)
Quarter: 2012Q1

REPORT INFORMATION
  Report Type: 
  Country: None (occurrence: None)
  Receive Date: 20120309
  Receipt Date: 20120228
  Transmission Date: 20120608
  Serious: Yes (Hospitalization)
  Sender: FDA-Public Use
  Company Number: PHHY2012ES016913

PATIENT
  Age: 70 Year
  Sex: Male

DRUGS (6)
  1. PANTOPRAZOLE [Interacting]
     Dosage: 20 MG, QD
  2. DIGOXIN [Concomitant]
  3. MASDIL [Concomitant]
  4. SEROQUEL [Concomitant]
  5. STALEVO 100 [Suspect]
     Indication: PARKINSON'S DISEASE
     Dosage: 1 DF, Q4H
     Dates: start: 20060101
  6. SINTROM [Interacting]
     Indication: ATRIAL FIBRILLATION
     Dates: start: 20030101, end: 20111026

REACTIONS (5)
  - ANAEMIA [None]
  - FAECES DISCOLOURED [None]
  - PNEUMONIA ASPIRATION [None]
  - GASTROINTESTINAL HAEMORRHAGE [None]
  - DRUG INTERACTION [None]
